FAERS Safety Report 11874115 (Version 1)
Quarter: 2015Q4

REPORT INFORMATION
  Report Type: Report from Study
  Country: US (occurrence: US)
  Receive Date: 20151229
  Receipt Date: 20151229
  Transmission Date: 20160305
  Serious: Yes (Other)
  Sender: FDA-Public Use
  Company Number: PHEH2015US004042

PATIENT
  Sex: Male

DRUGS (1)
  1. SANDIMMUNE [Suspect]
     Active Substance: CYCLOSPORINE
     Indication: PRODUCT USED FOR UNKNOWN INDICATION
     Dosage: 100 MG, BID
     Route: 048

REACTIONS (8)
  - Essential hypertension [Unknown]
  - Plantar fasciitis [Unknown]
  - Mucous membrane disorder [Unknown]
  - Cough [Unknown]
  - Erythema [Unknown]
  - Tonsillar disorder [Unknown]
  - Hyperlipidaemia [Unknown]
  - Migraine [Not Recovered/Not Resolved]
